FAERS Safety Report 5635602-8 (Version None)
Quarter: 2008Q1

REPORT INFORMATION
  Report Type: 
  Country: None (occurrence: None)
  Receive Date: 20080222
  Receipt Date: 20080220
  Transmission Date: 20080703
  Serious: Yes (Death, Hospitalization, Other)
  Sender: FDA-Public Use
  Company Number: IT-BAYER-200715949GDS

PATIENT
  Age: 58 Year
  Sex: Male
  Weight: 62 kg

DRUGS (43)
  1. SORAFENIB OR PLACEBO [Suspect]
     Indication: NON-SMALL CELL LUNG CANCER
     Dosage: TOTAL DAILY DOSE: 800 MG
     Route: 048
     Dates: start: 20070921, end: 20070927
  2. CISPLATIN [Suspect]
     Indication: NON-SMALL CELL LUNG CANCER
     Dosage: TOTAL DAILY DOSE: 121 MG
     Route: 042
     Dates: start: 20070921, end: 20070921
  3. GEMZAR [Suspect]
     Indication: NON-SMALL CELL LUNG CANCER
     Dosage: TOTAL DAILY DOSE: 2025 MG
     Route: 042
     Dates: start: 20070921, end: 20070921
  4. ELECTROLYTE SOLUTION [Concomitant]
     Indication: DEHYDRATION
     Route: 042
     Dates: start: 20070930
  5. ALBUMINA [Concomitant]
     Indication: HYPOALBUMINAEMIA
     Route: 042
     Dates: start: 20071005, end: 20071007
  6. ALBUMINA [Concomitant]
     Route: 042
     Dates: start: 20071003, end: 20071004
  7. OMEPRAZOLE [Concomitant]
     Indication: PROPHYLAXIS
     Dosage: UNIT DOSE: 20 MG
     Route: 042
     Dates: start: 20071002
  8. CALCIO [Concomitant]
     Indication: HYPOCALCAEMIA
     Route: 042
     Dates: start: 20070930
  9. REVIVAN [Concomitant]
     Indication: HYPOTENSION
     Route: 042
     Dates: start: 20070928
  10. CIPROXIN [Concomitant]
     Indication: PYREXIA
     Route: 042
     Dates: start: 20070930, end: 20071007
  11. TARGOCID [Concomitant]
     Indication: PYREXIA
     Dosage: UNIT DOSE: 200 MG
     Route: 042
     Dates: start: 20071003, end: 20071007
  12. TARGOCID [Concomitant]
     Route: 065
     Dates: start: 20071002, end: 20071002
  13. TARGOCID [Concomitant]
     Route: 065
     Dates: start: 20071003, end: 20071007
  14. TRANSTEC [Concomitant]
     Indication: PAIN MANAGEMENT
     Route: 065
     Dates: start: 20070910
  15. LANSOX [Concomitant]
     Indication: PROPHYLAXIS
     Route: 065
     Dates: start: 20070910, end: 20071002
  16. CLENIL [Concomitant]
     Indication: RESPIRATORY DISORDER
     Route: 055
     Dates: start: 20070910
  17. ACETAMOL [Concomitant]
     Indication: PAIN MANAGEMENT
     Route: 065
     Dates: start: 20070929, end: 20070929
  18. ACETAMOL [Concomitant]
     Route: 065
     Dates: start: 20071001, end: 20071001
  19. ACETAMOL [Concomitant]
     Route: 065
     Dates: start: 20070930, end: 20070930
  20. ACETAMOL [Concomitant]
     Route: 065
     Dates: start: 20070925
  21. ACETAMOL [Concomitant]
     Route: 065
     Dates: start: 20070919, end: 20070924
  22. URBASON [Concomitant]
     Indication: PAIN MANAGEMENT
     Route: 065
     Dates: start: 20070915, end: 20070924
  23. URBASON [Concomitant]
     Route: 065
     Dates: start: 20071003, end: 20071004
  24. URBASON [Concomitant]
     Route: 065
     Dates: start: 20071005, end: 20071007
  25. RANIDIL [Concomitant]
     Indication: PROPHYLAXIS
     Route: 065
     Dates: start: 20070925, end: 20070925
  26. RANIDIL [Concomitant]
     Route: 065
     Dates: start: 20070920, end: 20070921
  27. KYTRIL [Concomitant]
     Indication: NAUSEA
     Route: 065
     Dates: start: 20070925, end: 20070925
  28. DECADRON [Concomitant]
     Indication: NAUSEA
     Route: 065
     Dates: start: 20070925, end: 20070925
  29. GLUCOSE [Concomitant]
     Indication: DEHYDRATION
     Route: 065
     Dates: start: 20070925, end: 20070925
  30. GLUCOSE [Concomitant]
     Route: 065
     Dates: start: 20070928, end: 20070928
  31. EMAGEL [Concomitant]
     Indication: HYPOTENSION
     Route: 065
     Dates: start: 20070928, end: 20070928
  32. REVIVAN [Concomitant]
     Route: 065
     Dates: start: 20070928, end: 20070928
  33. REVIVAN [Concomitant]
     Route: 065
     Dates: start: 20071007, end: 20071007
  34. SODIUM CHLORIDE [Concomitant]
     Indication: DEHYDRATION
     Route: 065
     Dates: start: 20070928, end: 20070928
  35. SODIUM CHLORIDE [Concomitant]
     Route: 065
     Dates: start: 20071003, end: 20071007
  36. SODIUM CHLORIDE [Concomitant]
     Route: 065
     Dates: start: 20070929, end: 20071002
  37. LASIX [Concomitant]
     Indication: DIURETIC THERAPY
     Route: 065
     Dates: start: 20070928, end: 20070928
  38. OMEPRAZOLE [Concomitant]
     Route: 065
     Dates: start: 20071002, end: 20071007
  39. ANTITHROMBIN III [Concomitant]
     Indication: ANTITHROMBIN III DECREASED
     Route: 065
     Dates: start: 20071002, end: 20071007
  40. ANTITHROMBIN III [Concomitant]
     Route: 065
     Dates: start: 20070929, end: 20070929
  41. ANTITHROMBIN III [Concomitant]
     Route: 065
     Dates: start: 20071001, end: 20071001
  42. KONAKION [Concomitant]
     Indication: THROMBOCYTOPENIA
     Route: 065
     Dates: start: 20071001, end: 20071006
  43. PERFALGAN [Concomitant]
     Indication: PYREXIA
     Route: 065
     Dates: start: 20071007, end: 20071007

REACTIONS (2)
  - HYPONATRAEMIA [None]
  - LEFT VENTRICULAR DYSFUNCTION [None]
